FAERS Safety Report 23418940 (Version 4)
Quarter: 2024Q1

REPORT INFORMATION
  Report Type: Spontaneous
  Country: US (occurrence: US)
  Receive Date: 20240118
  Receipt Date: 20240201
  Transmission Date: 20240410
  Serious: Yes (Hospitalization)
  Sender: FDA-Public Use
  Company Number: US-ELI_LILLY_AND_COMPANY-US202401007985

PATIENT
  Age: 81 Year
  Sex: Female
  Weight: 87.075 kg

DRUGS (4)
  1. ADCIRCA [Suspect]
     Active Substance: TADALAFIL
     Indication: Pulmonary arterial hypertension
     Dosage: UNK, UNKNOWN
     Route: 065
  2. ORENITRAM [Suspect]
     Active Substance: TREPROSTINIL
     Indication: Pulmonary arterial hypertension
     Dosage: 13.625 MG, TID (TAKING 1-0.125MG + 1-1MG + 1-2.5MG + 2-5MG)
     Route: 048
     Dates: start: 20231026
  3. ORENITRAM [Suspect]
     Active Substance: TREPROSTINIL
     Dosage: 13.75 MG, TID
     Route: 065
  4. REMODULIN [Suspect]
     Active Substance: TREPROSTINIL
     Indication: Pulmonary arterial hypertension
     Dosage: 65.01 NG/KG/MIN, CONTINUOUS
     Route: 042
     Dates: start: 20210325

REACTIONS (17)
  - Oedema [Unknown]
  - Fluid retention [Not Recovered/Not Resolved]
  - Swelling [Not Recovered/Not Resolved]
  - Illness [Unknown]
  - Vascular device infection [Unknown]
  - Contusion [Unknown]
  - Arthritis [Unknown]
  - Weight increased [Unknown]
  - Weight decreased [Unknown]
  - Scleroderma [Unknown]
  - Respiration abnormal [Unknown]
  - General physical health deterioration [Unknown]
  - Pain [Unknown]
  - Vomiting [Unknown]
  - Malaise [Unknown]
  - Diarrhoea [Unknown]
  - Headache [Unknown]
